FAERS Safety Report 19078557 (Version 5)
Quarter: 2024Q1

REPORT INFORMATION
  Report Type: Other
  Country: US (occurrence: None)
  Receive Date: 20210331
  Receipt Date: 20240223
  Transmission Date: 20240409
  Serious: Yes (Other)
  Sender: FDA-Public Use
  Company Number: US-ROCHE-2787610

PATIENT
  Age: 76 Year
  Sex: Female
  Weight: 62.652 kg

DRUGS (23)
  1. ACTEMRA [Suspect]
     Active Substance: TOCILIZUMAB
     Indication: Giant cell arteritis
     Dosage: 162MG/0.9ML ;ONGOING: YES, INJECTION
     Route: 058
     Dates: start: 20190823, end: 20220115
  2. ACTEMRA [Suspect]
     Active Substance: TOCILIZUMAB
     Route: 058
     Dates: start: 20220623
  3. ACTEMRA [Suspect]
     Active Substance: TOCILIZUMAB
     Indication: Giant cell arteritis
     Route: 058
  4. ACTEMRA [Suspect]
     Active Substance: TOCILIZUMAB
  5. ACTEMRA [Suspect]
     Active Substance: TOCILIZUMAB
     Indication: Autoimmune disorder
     Route: 058
  6. ACTEMRA [Suspect]
     Active Substance: TOCILIZUMAB
  7. PREDNISONE [Concomitant]
     Active Substance: PREDNISONE
     Indication: Giant cell arteritis
     Route: 048
     Dates: start: 20190502, end: 20190505
  8. LEVOTHYROXINE [Concomitant]
     Active Substance: LEVOTHYROXINE\LEVOTHYROXINE SODIUM
     Dosage: ALTERNATE BETWEEN 88MCG AND 100MCG
  9. LEVOTHYROXINE [Concomitant]
     Active Substance: LEVOTHYROXINE\LEVOTHYROXINE SODIUM
     Dosage: ALTERNATE BETWEEN 88MCG AND 100MCG
  10. METOPROLOL [Concomitant]
     Active Substance: METOPROLOL
     Indication: Hypertension
  11. LORAZEPAM [Concomitant]
     Active Substance: LORAZEPAM
     Dosage: AS NEEDED
  12. TEMAZEPAM [Concomitant]
     Active Substance: TEMAZEPAM
     Dosage: AS NEEDED
     Dates: start: 2020
  13. ESTRADIOL [Concomitant]
     Active Substance: ESTRADIOL
     Indication: Atrophic vulvovaginitis
     Route: 067
  14. CALCIUM CITRATE + D3 [Concomitant]
     Dosage: 13MCG D3, 630MG CALCIUM
  15. MAGNESIUM [Concomitant]
     Active Substance: MAGNESIUM
  16. VITAMIN C [Concomitant]
     Active Substance: ASCORBIC ACID
     Dates: start: 2020
  17. VITAMIN B COMPLEX [Concomitant]
     Active Substance: CYANOCOBALAMIN\DEXPANTHENOL\NIACINAMIDE\PYRIDOXINE HYDROCHLORIDE\RIBOFLAVIN 5^-PHOSPHATE SODIUM\THIA
     Dates: start: 2020
  18. ACETAMINOPHEN [Concomitant]
     Active Substance: ACETAMINOPHEN
     Dosage: AS NEEDED
  19. PREDNISOLONE [Concomitant]
     Active Substance: PREDNISOLONE
  20. METHYLPREDNISOLONE [Concomitant]
     Active Substance: METHYLPREDNISOLONE
     Indication: Giant cell arteritis
     Route: 042
     Dates: start: 20190502, end: 20190505
  21. PROLAMINE IODINE [Concomitant]
     Route: 048
  22. VAGIFEM [Concomitant]
     Active Substance: ESTRADIOL
     Route: 054
  23. TYLENOL [Concomitant]
     Active Substance: ACETAMINOPHEN
     Indication: Headache

REACTIONS (12)
  - Blindness unilateral [Unknown]
  - Pain in jaw [Recovering/Resolving]
  - Ear pain [Recovering/Resolving]
  - Headache [Recovered/Resolved]
  - Photopsia [Recovered/Resolved]
  - Vitamin B12 decreased [Unknown]
  - Vitamin D decreased [Unknown]
  - Pain [Unknown]
  - Headache [Unknown]
  - Asthenia [Unknown]
  - Arthropathy [Unknown]
  - Hyperhidrosis [Unknown]

NARRATIVE: CASE EVENT DATE: 20200101
